FAERS Safety Report 5265841-X (Version None)
Quarter: 2007Q1

REPORT INFORMATION
  Report Type: 
  Country: None (occurrence: None)
  Receive Date: 20070312
  Receipt Date: 20070312
  Transmission Date: 20070707
  Serious: Yes (Life-Threatening, Hospitalization, Other)
  Sender: FDA-Public Use
  Company Number: None

PATIENT
  Age: 41 Year
  Sex: Male
  Weight: 82.5547 kg

DRUGS (5)
  1. EPOGEN [Suspect]
     Indication: ANAEMIA
     Dosage: 10,000 IU 3X/WEEK IV
     Route: 042
     Dates: start: 20061016, end: 20061204
  2. EPOGEN [Suspect]
     Indication: RENAL FAILURE CHRONIC
     Dosage: 10,000 IU 3X/WEEK IV
     Route: 042
     Dates: start: 20061016, end: 20061204
  3. VENOFER [Concomitant]
  4. PORK HEPARIN [Concomitant]
  5. ANESTHESIA [Concomitant]

REACTIONS (9)
  - ANAEMIA [None]
  - BLOOD CREATININE INCREASED [None]
  - COMPLICATIONS OF TRANSPLANTED KIDNEY [None]
  - DEHYDRATION [None]
  - ELECTROLYTE IMBALANCE [None]
  - POST PROCEDURAL COMPLICATION [None]
  - RENAL NECROSIS [None]
  - RENAL VEIN THROMBOSIS [None]
  - URETERAL NECROSIS [None]
